FAERS Safety Report 23781959 (Version 6)
Quarter: 2024Q4

REPORT INFORMATION
  Report Type: Report from Study
  Country: CA (occurrence: CA)
  Receive Date: 20240425
  Receipt Date: 20241015
  Transmission Date: 20250114
  Serious: Yes (Other)
  Sender: JOHNSON AND JOHNSON
  Company Number: CA-JNJFOC-20240100806

PATIENT
  Age: 4 Decade
  Sex: Female

DRUGS (7)
  1. REMICADE [Suspect]
     Active Substance: INFLIXIMAB
     Indication: Crohn^s disease
     Route: 041
     Dates: start: 20231229
  2. REMICADE [Suspect]
     Active Substance: INFLIXIMAB
     Dosage: EXPIRY: /AUG/2026, JAN-2026
     Route: 041
     Dates: start: 20170418
  3. REMICADE [Suspect]
     Active Substance: INFLIXIMAB
     Dosage: EXP DATE: 11-2026, EXPIRY DATE: 03/27
     Route: 041
  4. HUMALOG [Concomitant]
     Active Substance: INSULIN LISPRO
  5. INSULIN NOS [Concomitant]
     Active Substance: INSULIN NOS
  6. PAXLOVID [Concomitant]
     Active Substance: NIRMATRELVIR\RITONAVIR
  7. VALACYCLOVIR [Concomitant]
     Active Substance: VALACYCLOVIR HYDROCHLORIDE

REACTIONS (10)
  - Nephrolithiasis [Unknown]
  - Gestational diabetes [Recovered/Resolved]
  - Hepatic steatosis [Recovered/Resolved]
  - Postpartum haemorrhage [Recovering/Resolving]
  - Placenta praevia [Recovered/Resolved]
  - Abdominal pain upper [Not Recovered/Not Resolved]
  - SARS-CoV-2 test positive [Not Recovered/Not Resolved]
  - Fall [Unknown]
  - Beta haemolytic streptococcal infection [Unknown]
  - Exposure during pregnancy [Recovered/Resolved]

NARRATIVE: CASE EVENT DATE: 20240714
